FAERS Safety Report 10561503 (Version 1)
Quarter: 2014Q4

REPORT INFORMATION
  Report Type: Spontaneous
  Country: NZ (occurrence: NZ)
  Receive Date: 20141103
  Receipt Date: 20141103
  Transmission Date: 20150529
  Serious: Yes (Life-Threatening)
  Sender: FDA-Public Use
  Company Number: NZ-ELI_LILLY_AND_COMPANY-NZ201411000149

PATIENT
  Age: 50 Year
  Sex: Female

DRUGS (5)
  1. TROPISETRON [Concomitant]
     Active Substance: TROPISETRON
     Indication: PREMEDICATION
     Dosage: 5 MG, CYCLICAL
     Route: 042
     Dates: start: 20140626, end: 20140626
  2. APREPITANT. [Concomitant]
     Active Substance: APREPITANT
     Indication: PREMEDICATION
     Dosage: 125 MG, CYCLICAL
     Route: 048
     Dates: start: 20140626, end: 20140626
  3. GEMCITABINE HYDROCHLORIDE. [Suspect]
     Active Substance: GEMCITABINE HYDROCHLORIDE
     Indication: OVARIAN CANCER
     Dosage: UNK, CYCLICAL
     Route: 042
     Dates: start: 20140626, end: 20140626
  4. CARBOPLATIN. [Concomitant]
     Active Substance: CARBOPLATIN
     Indication: OVARIAN CANCER
     Dosage: 246 ML, CYCLICAL
     Route: 042
     Dates: start: 20140626, end: 20140626
  5. DEXAMETHASONE. [Concomitant]
     Active Substance: DEXAMETHASONE
     Indication: PREMEDICATION
     Dosage: 8 MG, CYCLICAL
     Route: 042
     Dates: start: 20140626, end: 20140626

REACTIONS (5)
  - Tachycardia [Recovered/Resolved]
  - Hypertension [Recovered/Resolved]
  - Pruritus [Recovered/Resolved]
  - Angioedema [Recovered/Resolved]
  - Rash [Recovered/Resolved]
